FAERS Safety Report 23321571 (Version 1)
Quarter: 2023Q4

REPORT INFORMATION
  Report Type: Report from Study
  Country: US (occurrence: US)
  Receive Date: 20231220
  Receipt Date: 20231220
  Transmission Date: 20240110
  Serious: Yes (Hospitalization, Other)
  Sender: FDA-Public Use
  Company Number: US-002147023-NVSC2023US103972

PATIENT
  Age: 73 Year
  Sex: Male
  Weight: 95.3 kg

DRUGS (8)
  1. LAMPRENE [Suspect]
     Active Substance: CLOFAZIMINE
     Indication: Bone tuberculosis
     Dosage: 100 MG, QD
     Route: 048
     Dates: start: 20230414, end: 20230929
  2. IMIPENEM AND CILASTATIN [Concomitant]
     Active Substance: CILASTATIN SODIUM\IMIPENEM
     Indication: Bone tuberculosis
     Dosage: 500 MG, Q8H
     Route: 042
     Dates: start: 20230307
  3. OMADACYCLINE [Concomitant]
     Active Substance: OMADACYCLINE
     Indication: Bone tuberculosis
     Dosage: 300 MG, Q24H
     Route: 048
     Dates: start: 20230322
  4. INSULIN NOS [Concomitant]
     Active Substance: INSULIN NOS
     Indication: Type 2 diabetes mellitus
     Dosage: UNK UNK, QD (LANTUS, 5 UNIT NIGHTLY)
     Route: 065
  5. INSULIN ASPART [Concomitant]
     Active Substance: INSULIN ASPART
     Indication: Product used for unknown indication
     Dosage: 3 UNITS, TID
     Route: 065
  6. LANTUS [Concomitant]
     Active Substance: INSULIN GLARGINE
     Indication: Product used for unknown indication
     Dosage: 5 UNITS NIGHT
     Route: 065
  7. AMIKACIN [Concomitant]
     Active Substance: AMIKACIN
     Indication: Bone tuberculosis
     Dosage: 25 MG/KG
     Route: 065
     Dates: start: 20231027
  8. MICAFUNGIN [Concomitant]
     Active Substance: MICAFUNGIN SODIUM
     Indication: Osteomyelitis
     Dosage: UNK
     Route: 065

REACTIONS (4)
  - Cardiac failure [Recovered/Resolved]
  - Ventricular hypokinesia [Unknown]
  - Electrocardiogram QT prolonged [Recovered/Resolved]
  - Polyuria [Recovered/Resolved]

NARRATIVE: CASE EVENT DATE: 20230425
